FAERS Safety Report 4542829-5 (Version None)
Quarter: 2004Q4

REPORT INFORMATION
  Report Type: 
  Country: None (occurrence: None)
  Receive Date: 20041229
  Receipt Date: 20041215
  Transmission Date: 20050328
  Serious: Yes (Hospitalization, Other)
  Sender: FDA-Public Use
  Company Number: US-2004-036630

PATIENT
  Age: 59 Year
  Sex: Female

DRUGS (4)
  1. BETASERON [Suspect]
     Indication: MULTIPLE SCLEROSIS
     Dosage: 8 MIU, EVERY 2D, SUBCUTANEOUS
     Route: 058
  2. BACLOFEN [Concomitant]
  3. DITROPAN [Concomitant]
  4. FIBERCON               (POLYCARBOPHIL CALCIUM) [Concomitant]

REACTIONS (7)
  - BREAST CANCER FEMALE [None]
  - DECUBITUS ULCER [None]
  - FATIGUE [None]
  - LETHARGY [None]
  - SEPSIS [None]
  - THROMBOSIS [None]
  - WHITE BLOOD CELL COUNT DECREASED [None]
